FAERS Safety Report 16085173 (Version 1)
Quarter: 2019Q2

REPORT INFORMATION
  Report Type: Spontaneous
  Country: US (occurrence: US)
  Receive Date: 20190318
  Receipt Date: 20190318
  Transmission Date: 20190711
  Serious: Yes (Other)
  Sender: FDA-Public Use
  Company Number: None

PATIENT
  Age: 44 Year
  Sex: Male
  Weight: 94.5 kg

DRUGS (1)
  1. MONTELUKAST [Suspect]
     Active Substance: MONTELUKAST SODIUM
     Indication: RHINITIS ALLERGIC
     Dosage: ?          QUANTITY:1 TABLET(S);?
     Route: 048
     Dates: start: 20190218, end: 20190317

REACTIONS (6)
  - Swelling [None]
  - Headache [None]
  - Pharyngeal swelling [None]
  - Nausea [None]
  - Cough [None]
  - Throat tightness [None]

NARRATIVE: CASE EVENT DATE: 20190317
